FAERS Safety Report 12271841 (Version 1)
Quarter: 2016Q2

REPORT INFORMATION
  Report Type: Spontaneous
  Country: US (occurrence: None)
  Receive Date: 20160414
  Receipt Date: 20160414
  Transmission Date: 20160815
  Serious: Yes (Hospitalization)
  Sender: FDA-Public Use
  Company Number: None

PATIENT
  Age: 37 Year
  Sex: Female

DRUGS (1)
  1. TRACLEER [Suspect]
     Active Substance: BOSENTAN
     Indication: PULMONARY ARTERIAL HYPERTENSION
     Route: 048
     Dates: start: 20141203

REACTIONS (7)
  - Malaise [None]
  - Cardiac failure [None]
  - Septic shock [None]
  - Staphylococcus test positive [None]
  - Respiratory failure [None]
  - Sepsis [None]
  - Dehydration [None]

NARRATIVE: CASE EVENT DATE: 20160401
